FAERS Safety Report 7726101-8 (Version None)
Quarter: 2011Q3

REPORT INFORMATION
  Report Type: 
  Country: None (occurrence: None)
  Receive Date: 20110902
  Receipt Date: 20110826
  Transmission Date: 20111222
  Serious: Yes (Death, Hospitalization, Other)
  Sender: FDA-Public Use
  Company Number: JP-GENZYME-THYM-1002729

PATIENT
  Age: 21 Year
  Sex: Female
  Weight: 46 kg

DRUGS (18)
  1. METHYLPREDNISOLONE SODIUM SUCCINATE [Concomitant]
     Dosage: UNK
     Dates: start: 20090926, end: 20091025
  2. LANSOPRAZOLE [Concomitant]
     Indication: PROPHYLAXIS AGAINST GASTROINTESTINAL ULCER
     Dosage: UNK
     Dates: start: 20090917, end: 20091201
  3. TACROLIMUS [Concomitant]
     Indication: PROPHYLAXIS AGAINST GRAFT VERSUS HOST DISEASE
     Dosage: UNK
     Dates: start: 20090923, end: 20091103
  4. TACROLIMUS [Concomitant]
     Dosage: UNK
     Dates: start: 20091109, end: 20100103
  5. METHYLPREDNISOLONE SODIUM SUCCINATE [Concomitant]
     Indication: PREMEDICATION
     Dosage: UNK
     Dates: start: 20090923, end: 20090924
  6. FLUCONAZOLE [Concomitant]
     Indication: ANTIFUNGAL PROPHYLAXIS
     Dosage: UNK
     Dates: start: 20090917, end: 20091201
  7. ACYCLOVIR [Concomitant]
     Indication: ANTIVIRAL PROPHYLAXIS
     Dosage: UNK
     Dates: start: 20091130, end: 20100405
  8. LEVOFLOXACIN [Concomitant]
     Indication: ANTIBIOTIC PROPHYLAXIS
     Dosage: UNK
     Dates: start: 20091228, end: 20100124
  9. FLUCONAZOLE [Concomitant]
     Dosage: UNK
     Dates: start: 20091207, end: 20100224
  10. THYMOGLOBULIN [Suspect]
     Indication: BONE MARROW CONDITIONING REGIMEN
     Dosage: 50 MG, QD
     Route: 042
     Dates: start: 20090923, end: 20090923
  11. THYMOGLOBULIN [Suspect]
     Dosage: 64 MG, QD
     Route: 042
     Dates: start: 20090924, end: 20090924
  12. FLUDARABINE PHOSPHATE [Concomitant]
     Indication: BONE MARROW CONDITIONING REGIMEN
     Dosage: UNK
     Route: 065
     Dates: start: 20090917, end: 20090922
  13. BUSULFAN [Concomitant]
     Indication: BONE MARROW CONDITIONING REGIMEN
     Dosage: UNK
     Dates: start: 20090921, end: 20090922
  14. FAMOTIDINE [Concomitant]
     Indication: PROPHYLAXIS AGAINST GASTROINTESTINAL ULCER
     Dosage: UNK
     Dates: start: 20091205, end: 20100328
  15. SULFAMETHOPRIM [Concomitant]
     Indication: ANTIFUNGAL PROPHYLAXIS
     Dosage: UNK
     Dates: start: 20091207, end: 20100405
  16. RAMOSETRON HYDROCHLORIDE [Concomitant]
     Indication: PROPHYLAXIS OF NAUSEA AND VOMITING
     Dosage: UNK
     Dates: start: 20090921, end: 20090922
  17. CYTARABINE [Concomitant]
     Indication: BONE MARROW CONDITIONING REGIMEN
     Dosage: UNK
     Dates: start: 20090917, end: 20090920
  18. METHOTREXATE [Concomitant]
     Indication: PROPHYLAXIS AGAINST GRAFT VERSUS HOST DISEASE
     Dosage: UNK
     Dates: start: 20090926, end: 20091001

REACTIONS (9)
  - BONE MARROW FAILURE [None]
  - INAPPROPRIATE ANTIDIURETIC HORMONE SECRETION [None]
  - ACUTE GRAFT VERSUS HOST DISEASE IN SKIN [None]
  - CYTOMEGALOVIRUS TEST POSITIVE [None]
  - FEBRILE NEUTROPENIA [None]
  - ACUTE MYELOID LEUKAEMIA RECURRENT [None]
  - BACTERAEMIA [None]
  - ACUTE GRAFT VERSUS HOST DISEASE [None]
  - ENTEROCOCCAL BACTERAEMIA [None]
